FAERS Safety Report 7029943-X (Version None)
Quarter: 2010Q4

REPORT INFORMATION
  Report Type: 
  Country: None (occurrence: None)
  Receive Date: 20101006
  Receipt Date: 20100923
  Transmission Date: 20110411
  Serious: Yes (Death)
  Sender: FDA-Public Use
  Company Number: CA-ELI_LILLY_AND_COMPANY-CA201009006960

PATIENT
  Age: 70 Year
  Sex: Male

DRUGS (2)
  1. FORTEO [Suspect]
     Indication: OSTEOPOROSIS
     Dosage: 20 UG, DAILY (1/D)
     Route: 058
     Dates: start: 20100806, end: 20100923
  2. TYLENOL (CAPLET) [Concomitant]
     Dosage: UNK, AS NEEDED

REACTIONS (4)
  - DEATH [None]
  - DYSPNOEA [None]
  - HEADACHE [None]
  - PRODUCTIVE COUGH [None]
